FAERS Safety Report 9683779 (Version 2)
Quarter: 2013Q4

REPORT INFORMATION
  Report Type: Spontaneous
  Country: US (occurrence: US)
  Receive Date: 20131112
  Receipt Date: 20131112
  Transmission Date: 20140711
  Serious: Yes (Hospitalization, Other)
  Sender: FDA-Public Use
  Company Number: US-B.I. PHARMACEUTICALS,INC./RIDGEFIELD-2013-BI-14237BP

PATIENT
  Age: 71 Year
  Sex: Female
  Weight: 136.08 kg

DRUGS (15)
  1. PRADAXA [Suspect]
     Indication: ANTICOAGULANT THERAPY
     Dosage: 300 MG
     Dates: start: 20120105, end: 20121216
  2. PRADAXA [Suspect]
     Indication: ATRIAL FIBRILLATION
  3. VENTOLIN HFA [Concomitant]
     Indication: DYSPNOEA
     Dosage: 2 PUF
     Route: 055
  4. DILTIAZEM [Concomitant]
     Dosage: 240 MG
     Route: 048
  5. FLONASE NASAL [Concomitant]
     Dosage: 1000 MCG
     Route: 055
  6. LASIX [Concomitant]
     Dosage: 160 MG
     Route: 048
  7. GABAPENTIN [Concomitant]
     Dosage: 400 MG
     Route: 048
  8. HYDROXYCHLOROQUINE [Concomitant]
     Dosage: 400 MG
     Route: 048
  9. LORAZEPAM [Concomitant]
     Indication: ANXIETY
     Route: 048
  10. MAG64 [Concomitant]
     Dosage: 64 MG
     Route: 048
  11. HYPOTEARS [Concomitant]
     Dosage: 60 ML
  12. OMEGA-3 [Concomitant]
     Dosage: 1000 MG
     Route: 048
  13. KLOR-CON [Concomitant]
     Route: 048
  14. PRAVASTATIN [Concomitant]
     Dosage: 20 MG
     Route: 048
  15. SYNTHROID [Concomitant]
     Dosage: 150 MCG
     Route: 048

REACTIONS (2)
  - Gastrointestinal haemorrhage [Unknown]
  - Anaemia [Unknown]
